FAERS Safety Report 20557267 (Version 2)
Quarter: 2022Q2

REPORT INFORMATION
  Report Type: Spontaneous
  Country: ZA (occurrence: ZA)
  Receive Date: 20220307
  Receipt Date: 20220405
  Transmission Date: 20220720
  Serious: Yes (Hospitalization)
  Sender: FDA-Public Use
  Company Number: ZA-NOVOPROD-895124

PATIENT
  Sex: Female
  Weight: 133 kg

DRUGS (4)
  1. NOVORAPID [Suspect]
     Active Substance: INSULIN ASPART
     Dosage: 77 IU, QD (26U/25U/26U)
     Route: 058
  2. NOVORAPID [Suspect]
     Active Substance: INSULIN ASPART
     Indication: Type 2 diabetes mellitus
     Dosage: 20 IU, TID (WITH MEALS)
     Route: 058
     Dates: start: 202202
  3. LEVEMIR [Suspect]
     Active Substance: INSULIN DETEMIR
     Indication: Type 2 diabetes mellitus
     Dosage: 30 IU, QD(NIGHT)
     Route: 065
     Dates: start: 202202
  4. LEVEMIR [Suspect]
     Active Substance: INSULIN DETEMIR
     Dosage: 35 IU, QD(NIGHT)
     Route: 065

REACTIONS (2)
  - Blood glucose increased [Recovered/Resolved]
  - Maternal exposure during pregnancy [Unknown]
